FAERS Safety Report 5446815-2 (Version None)
Quarter: 2007Q3

REPORT INFORMATION
  Report Type: 
  Country: None (occurrence: None)
  Receive Date: 20070802
  Receipt Date: 20060815
  Transmission Date: 20080115
  Serious: Yes (Hospitalization)
  Sender: FDA-Public Use
  Company Number: MIN-00072

PATIENT
  Age: 23 Year
  Sex: Female

DRUGS (2)
  1. MINOCYCLINE, UNK. STRENGTH AND MANUFACTURER [Suspect]
     Indication: ACNE
     Dosage: UNK. DOSE AND FREQUENCY; ORAL
     Route: 048
     Dates: start: 20020424, end: 20020508
  2. VITAMIN A ACID + ERYTHROMYCIN (TOPICAL) [Concomitant]

REACTIONS (1)
  - DRUG HYPERSENSITIVITY [None]
